FAERS Safety Report 9496237 (Version 2)
Quarter: 2013Q3

REPORT INFORMATION
  Report Type: Report from Study
  Country: IL (occurrence: IL)
  Receive Date: 20130904
  Receipt Date: 20130904
  Transmission Date: 20140515
  Serious: Yes (Death, Life-Threatening, Hospitalization)
  Sender: FDA-Public Use
  Company Number: IL-BAYER-2012-123951

PATIENT
  Sex: Female
  Weight: 62 kg

DRUGS (2)
  1. REGORAFENIB [Suspect]
     Indication: COLORECTAL CANCER
     Dosage: 40 MG X 4 = 160MG
     Route: 048
     Dates: start: 20120924, end: 20121014
  2. REGORAFENIB [Suspect]
     Indication: COLORECTAL CANCER
     Dosage: 40 MG X 3 = 120 MG
     Route: 048
     Dates: start: 20121022, end: 20121112

REACTIONS (2)
  - Hyponatraemia [Not Recovered/Not Resolved]
  - General physical health deterioration [Fatal]
